FAERS Safety Report 15201101 (Version 2)
Quarter: 2018Q3

REPORT INFORMATION
  Report Type: Spontaneous
  Country: US (occurrence: US)
  Receive Date: 20180726
  Receipt Date: 20180911
  Transmission Date: 20181010
  Serious: No
  Sender: FDA-Public Use
  Company Number: US-PFIZER INC-2018295564

PATIENT
  Age: 16 Year
  Sex: Male
  Weight: 24.4 kg

DRUGS (3)
  1. GENOTROPIN [Suspect]
     Active Substance: SOMATROPIN
     Dosage: 0.8 MG INJECTION TO LEG OR ARM MUSCLE ONCE A DAY AT NIGHT TIME
  2. GENOTROPIN [Suspect]
     Active Substance: SOMATROPIN
     Indication: BLOOD GROWTH HORMONE ABNORMAL
     Dosage: 1.0 MG, UNK (STARTED ON 1.0 MG)
     Dates: start: 2018
  3. GENOTROPIN [Suspect]
     Active Substance: SOMATROPIN
     Dosage: 0.5 MG, UNK (CHANGED THE DOSE TO 0.5 MG)

REACTIONS (3)
  - Device failure [Unknown]
  - Pain [Unknown]
  - Drug dose omission [Unknown]
